FAERS Safety Report 13853326 (Version 1)
Quarter: 2017Q3

REPORT INFORMATION
  Report Type: Report from Study
  Country: US (occurrence: US)
  Receive Date: 20170809
  Receipt Date: 20170809
  Transmission Date: 20171127
  Serious: Yes (Hospitalization, Other)
  Sender: FDA-Public Use
  Company Number: US-MALLINCKRODT-T201702607

PATIENT
  Sex: Female

DRUGS (5)
  1. REPOSITORY CORTICOTROPIN INJECTION [Suspect]
     Active Substance: CORTICOTROPIN
     Indication: SYSTEMIC LUPUS ERYTHEMATOSUS
     Dosage: 40UNITS,TWICE WEEKLY FOR TWO WEEKS
     Route: 058
     Dates: start: 20170516
  2. REPOSITORY CORTICOTROPIN INJECTION [Suspect]
     Active Substance: CORTICOTROPIN
     Indication: NEPHROTIC SYNDROME
     Dosage: 80 UNITS/ML, TWICE WEEKLY FOR 6 MONTHS
     Route: 058
  3. REPOSITORY CORTICOTROPIN INJECTION [Suspect]
     Active Substance: CORTICOTROPIN
     Dosage: 40 UNITS / .5 ML, FOR 1 WK, THEN 80, 2 TIMES PER WEEK
     Route: 058
     Dates: start: 20170518
  4. REPOSITORY CORTICOTROPIN INJECTION [Suspect]
     Active Substance: CORTICOTROPIN
     Indication: PROTEINURIA
     Dosage: 80 UNITS, TWICE WEEKLY
     Route: 058
     Dates: start: 20170516
  5. REPOSITORY CORTICOTROPIN INJECTION [Suspect]
     Active Substance: CORTICOTROPIN
     Dosage: 80 UNITS / 1 ML FOR 1 WK, THEN 80
     Route: 058
     Dates: start: 20170518

REACTIONS (3)
  - Abortion spontaneous [Unknown]
  - Systemic lupus erythematosus [Unknown]
  - Exposure during pregnancy [Unknown]
